FAERS Safety Report 10921849 (Version 1)
Quarter: 2015Q1

REPORT INFORMATION
  Report Type: Spontaneous
  Country: US (occurrence: None)
  Receive Date: 20150128
  Receipt Date: 20150128
  Transmission Date: 20150721
  Serious: No
  Sender: FDA-Public Use
  Company Number: 2014TUS010669

PATIENT
  Age: 57 Year
  Sex: Female
  Weight: 62.6 kg

DRUGS (13)
  1. MELATONIN [Concomitant]
     Active Substance: MELATONIN
  2. PATANASE (OLOPATADINE HYDROCHLORIDE) [Concomitant]
  3. TEMAZEPAM. [Concomitant]
     Active Substance: TEMAZEPAM
  4. VYVANSE [Concomitant]
     Active Substance: LISDEXAMFETAMINE DIMESYLATE
  5. AMPYRA [Concomitant]
     Active Substance: DALFAMPRIDINE
  6. ESTRADIOL. [Concomitant]
     Active Substance: ESTRADIOL
  7. BRINTELLIX [Suspect]
     Active Substance: VORTIOXETINE HYDROBROMIDE
     Indication: DEPRESSION
     Dosage: 1 TABLET
     Route: 048
     Dates: start: 20140829
  8. LAMICTAL [Concomitant]
     Active Substance: LAMOTRIGINE
  9. LINZESS [Concomitant]
     Active Substance: LINACLOTIDE
  10. MODAFINIL. [Concomitant]
     Active Substance: MODAFINIL
  11. AZELASTINE HCL (AZELASTINE HYDROCHLORIDE) [Concomitant]
  12. BACLOFEN. [Concomitant]
     Active Substance: BACLOFEN
  13. TECFIDERA (DIMETHYL FUMARATE) [Concomitant]

REACTIONS (9)
  - Insomnia [None]
  - Rash [None]
  - Rash pruritic [None]
  - Dizziness [None]
  - Headache [None]
  - Acne [None]
  - Constipation [None]
  - Musculoskeletal stiffness [None]
  - Rhinorrhoea [None]

NARRATIVE: CASE EVENT DATE: 20140829
